FAERS Safety Report 25212034 (Version 1)
Quarter: 2025Q2

REPORT INFORMATION
  Report Type: Spontaneous
  Country: ES (occurrence: ES)
  Receive Date: 20250418
  Receipt Date: 20250418
  Transmission Date: 20250716
  Serious: Yes (Hospitalization)
  Sender: RECORDATI
  Company Number: ES-ORPHANEU-2025002737

PATIENT
  Age: 51 Year
  Sex: Male

DRUGS (2)
  1. PASIREOTIDE [Suspect]
     Active Substance: PASIREOTIDE
     Indication: Pituitary-dependent Cushing^s syndrome
     Route: 030
     Dates: start: 2021, end: 2021
  2. PASIREOTIDE [Suspect]
     Active Substance: PASIREOTIDE
     Indication: Pituitary tumour
     Route: 030
     Dates: start: 2021, end: 2022

REACTIONS (5)
  - Hyperadrenocorticism [Recovering/Resolving]
  - Capillary fragility [Unknown]
  - Diplopia [Recovering/Resolving]
  - Hypertension [Recovering/Resolving]
  - Disease progression [Recovered/Resolved]

NARRATIVE: CASE EVENT DATE: 20210101
